FAERS Safety Report 8697734 (Version 2)
Quarter: 2012Q4

REPORT INFORMATION
  Report Type: 
  Country: US (occurrence: US)
  Receive Date: 20120801
  Receipt Date: 20120925
  Transmission Date: 20130627
  Serious: No
  Sender: FDA-Public Use
  Company Number: US-ASTRAZENECA-2012SE49937

PATIENT
  Age: 65 Year
  Sex: Female

DRUGS (3)
  1. NEXIUM [Suspect]
     Route: 048
  2. SEROQUEL [Suspect]
     Route: 048
  3. GENERICS [Concomitant]

REACTIONS (7)
  - Oesophageal spasm [Unknown]
  - Nerve compression [Unknown]
  - Dyspepsia [Unknown]
  - Intervertebral disc disorder [Unknown]
  - Neck pain [Unknown]
  - Migraine [Unknown]
  - Drug dose omission [Unknown]
